FAERS Safety Report 20455026 (Version 1)
Quarter: 2022Q1

REPORT INFORMATION
  Report Type: Spontaneous
  Country: US (occurrence: US)
  Receive Date: 20220210
  Receipt Date: 20220210
  Transmission Date: 20220424
  Serious: No
  Sender: FDA-Public Use
  Company Number: US-PFIZER INC-202200056730

PATIENT
  Age: 62 Year
  Sex: Male

DRUGS (1)
  1. BOSULIF [Suspect]
     Active Substance: BOSUTINIB MONOHYDRATE
     Dosage: 200 MG, DAILY
     Route: 048
     Dates: start: 2012

REACTIONS (5)
  - Nasopharyngitis [Recovered/Resolved]
  - Fatigue [Unknown]
  - Nausea [Unknown]
  - Bone pain [Unknown]
  - Pain in extremity [Unknown]
